FAERS Safety Report 15771222 (Version 1)
Quarter: 2018Q4

REPORT INFORMATION
  Report Type: Spontaneous
  Country: US (occurrence: US)
  Receive Date: 20181228
  Receipt Date: 20181228
  Transmission Date: 20190205
  Serious: Yes (Other)
  Sender: FDA-Public Use
  Company Number: None

PATIENT
  Age: 44 Year
  Sex: Male
  Weight: 123.75 kg

DRUGS (12)
  1. AMITRIPTYLINE [Concomitant]
     Active Substance: AMITRIPTYLINE
  2. VITAMIN D [Concomitant]
     Active Substance: CHOLECALCIFEROL
  3. POTASSIUM [Concomitant]
     Active Substance: POTASSIUM
  4. LORATADINE. [Concomitant]
     Active Substance: LORATADINE
  5. FOLIC ACID. [Concomitant]
     Active Substance: FOLIC ACID
  6. ONDANSETRON [Concomitant]
     Active Substance: ONDANSETRON
  7. CALCIUM-MAGNESIUM-ZINC [Concomitant]
  8. ACYCLOVIR. [Concomitant]
     Active Substance: ACYCLOVIR
  9. NINLARO [Suspect]
     Active Substance: IXAZOMIB CITRATE
     Indication: PLASMA CELL MYELOMA
     Dosage: ?          OTHER FREQUENCY:ONCE WEEKLY;?
     Route: 048
     Dates: start: 20180828
  10. TURMERIC [Concomitant]
     Active Substance: HERBALS\TURMERIC
  11. MULTIVITAMINS [Concomitant]
     Active Substance: VITAMINS
  12. REVLIMID [Concomitant]
     Active Substance: LENALIDOMIDE

REACTIONS (1)
  - Pneumonia [None]
